FAERS Safety Report 8842302 (Version 1)
Quarter: 2012Q4

REPORT INFORMATION
  Report Type: 
  Country: US (occurrence: US)
  Receive Date: 20121016
  Receipt Date: 20121016
  Transmission Date: 20130627
  Serious: No
  Sender: FDA-Public Use
  Company Number: US-PFIZER INC-2012255355

PATIENT

DRUGS (2)
  1. PRISTIQ [Suspect]
     Indication: ANXIETY
     Dosage: UNK
  2. PRISTIQ [Suspect]
     Indication: DEPRESSION

REACTIONS (2)
  - Dysphagia [Unknown]
  - Off label use [Unknown]
